FAERS Safety Report 23240614 (Version 2)
Quarter: 2024Q1

REPORT INFORMATION
  Report Type: Spontaneous
  Country: TR (occurrence: None)
  Receive Date: 20231129
  Receipt Date: 20240110
  Transmission Date: 20240410
  Serious: Yes (Other)
  Sender: FDA-Public Use
  Company Number: 2023A265740

PATIENT
  Age: 23 Year
  Sex: Male

DRUGS (5)
  1. FASENRA [Suspect]
     Active Substance: BENRALIZUMAB
     Indication: Asthma
     Dosage: 30.0MG ONCE/SINGLE ADMINISTRATION
     Route: 058
     Dates: start: 20231031
  2. TRELEGY ELLIPTA [Concomitant]
     Active Substance: FLUTICASONE FUROATE\UMECLIDINIUM BROMIDE\VILANTEROL TRIFENATATE
  3. NAZOSTER [Concomitant]
  4. LEVOKAST [Concomitant]
  5. BILASTINE [Concomitant]
     Active Substance: BILASTINE

REACTIONS (7)
  - Dizziness [Unknown]
  - Visual impairment [Unknown]
  - Photophobia [Unknown]
  - Migraine with aura [Unknown]
  - Headache [Unknown]
  - Fatigue [Unknown]
  - Eczema [Unknown]

NARRATIVE: CASE EVENT DATE: 20231118
